FAERS Safety Report 7968024-5 (Version None)
Quarter: 2011Q4

REPORT INFORMATION
  Report Type: 
  Country: None (occurrence: None)
  Receive Date: 20111207
  Receipt Date: 20111121
  Transmission Date: 20120403
  Serious: Yes (Disabling, Other)
  Sender: FDA-Public Use
  Company Number: 2011AP002786

PATIENT
  Age: 79 Year
  Sex: Female

DRUGS (19)
  1. MORPHINE SULFATE INJ [Concomitant]
  2. RAMIPRIL [Concomitant]
  3. ASPIRIN [Concomitant]
  4. BISOPROLOL FUMARATE [Concomitant]
  5. ACETAMINOPHEN W/ CODEINE [Concomitant]
  6. FUROSEMIDE [Concomitant]
  7. METHOTREXATE [Concomitant]
  8. PREDNISOLONE [Concomitant]
  9. QVAR [Concomitant]
  10. ATORVASTATIN [Concomitant]
  11. DOXAZOSIN MESYLATE [Concomitant]
  12. VISCOPASTE (ZINC OXIDE) [Concomitant]
  13. HIBISCRUB (CHLORHEXIDINE GLUCONATE) [Concomitant]
  14. SODIUM CHLORIDE 0.9% [Concomitant]
  15. ALENDRONATE SODIUM [Suspect]
     Indication: PRODUCT USED FOR UNKNOWN INDICATION
     Dates: start: 20111026
  16. FENTANYL [Concomitant]
  17. OMEPRAZOLE [Concomitant]
  18. NASEPTIN (NASEPTIN) [Concomitant]
  19. ALBUTEROL SULFATE [Concomitant]

REACTIONS (2)
  - OSTEONECROSIS OF JAW [None]
  - OSTEONECROSIS [None]
